FAERS Safety Report 12287848 (Version 2)
Quarter: 2018Q4

REPORT INFORMATION
  Report Type: Report from Study
  Country: JP (occurrence: JP)
  Receive Date: 20160420
  Receipt Date: 20181023
  Transmission Date: 20190204
  Serious: Yes (Death, Life-Threatening, Other)
  Sender: FDA-Public Use
  Company Number: JP-BRISTOL-MYERS SQUIBB COMPANY-BMS-2016-029116

PATIENT
  Age: 50 Year
  Sex: Male

DRUGS (2)
  1. NIVOLUMAB [Suspect]
     Active Substance: NIVOLUMAB
     Indication: NON-SMALL CELL LUNG CANCER
     Dosage: UNK UNK, Q2WK
     Route: 041
     Dates: start: 20160201
  2. NIVOLUMAB [Suspect]
     Active Substance: NIVOLUMAB
     Indication: PRODUCT USED FOR UNKNOWN INDICATION
     Dosage: 3 MG/KG, Q2WK
     Route: 041
     Dates: end: 20160404

REACTIONS (2)
  - Malignant neoplasm progression [Fatal]
  - Brain stem haemorrhage [Not Recovered/Not Resolved]

NARRATIVE: CASE EVENT DATE: 2016
